FAERS Safety Report 8190355 (Version 4)
Quarter: 2014Q2

REPORT INFORMATION
  Report Type: Spontaneous
  Country: US (occurrence: US)
  Receive Date: 20111019
  Receipt Date: 20140514
  Transmission Date: 20141212
  Serious: Yes (Hospitalization)
  Sender: FDA-Public Use
  Company Number: US-ASTRAZENECA-2011SE61002

PATIENT
  Age: 65 Year
  Sex: Female
  Weight: 59 kg

DRUGS (8)
  1. NEXIUM [Suspect]
     Indication: GASTROOESOPHAGEAL REFLUX DISEASE
     Route: 048
     Dates: start: 2012
  2. METOPROLOL TARTRATE [Suspect]
     Indication: HYPERTENSION
     Route: 048
     Dates: start: 2000
  3. FIORINAL WITH CODEINE [Suspect]
     Route: 048
  4. CLONAZEPAM [Concomitant]
     Indication: TREMOR
     Route: 048
     Dates: start: 1989
  5. BUPROPION HCL ER [Concomitant]
     Indication: EX-TOBACCO USER
     Route: 048
     Dates: start: 2012
  6. TRAMADOL [Concomitant]
     Indication: PAIN
     Route: 048
     Dates: start: 2012
  7. ASCOMP CODEINE [Concomitant]
     Indication: PAIN
     Dosage: 50/325/40 30MG 2 TAB BID
     Route: 048
     Dates: start: 1998
  8. ASCOMP CODEINE [Concomitant]
     Indication: HEADACHE
     Dosage: 50/325/40 30MG 2 TAB BID
     Route: 048
     Dates: start: 1998

REACTIONS (7)
  - Dysphagia [Unknown]
  - Foreign body [Unknown]
  - Tremor [Not Recovered/Not Resolved]
  - Dizziness [Not Recovered/Not Resolved]
  - Malaise [Not Recovered/Not Resolved]
  - Headache [Not Recovered/Not Resolved]
  - Off label use [Not Recovered/Not Resolved]
